FAERS Safety Report 10974486 (Version 4)
Quarter: 2015Q3

REPORT INFORMATION
  Report Type: Spontaneous
  Country: DK (occurrence: DK)
  Receive Date: 20150401
  Receipt Date: 20150727
  Transmission Date: 20151125
  Serious: Yes (Death, Hospitalization)
  Sender: FDA-Public Use
  Company Number: DK-PFIZER INC-2015109789

PATIENT
  Age: 68 Year
  Sex: Male
  Weight: 80 kg

DRUGS (16)
  1. FURIX [Concomitant]
     Active Substance: FUROSEMIDE
     Indication: DIURETIC THERAPY
     Dosage: 40 MG, 4X/DAY
     Route: 048
  2. DICLON [Concomitant]
     Active Substance: DICLOFENAC SODIUM
     Indication: PAIN
     Dosage: 100 MG, 2X/DAY
     Route: 054
  3. FRAGMIN [Concomitant]
     Active Substance: DALTEPARIN SODIUM
     Dosage: STRENGTH: 25000 ANTI-XA IU/ML
     Route: 058
  4. PANTOPRAZOL ACTAVIS [Concomitant]
     Active Substance: PANTOPRAZOLE SODIUM
     Dosage: 40 MG, 1X/DAY
     Route: 048
  5. MEROPENEM HOSPIRA [Concomitant]
     Dosage: 1000 MG, 3X/DAY
     Route: 042
  6. BRICANYL [Concomitant]
     Active Substance: TERBUTALINE SULFATE
     Indication: LUNG DISORDER
     Dosage: 2,5 MG/ML; 2 ML AS NEEDED
     Route: 055
     Dates: start: 20140715, end: 20140725
  7. CIPRALEX [Concomitant]
     Active Substance: ESCITALOPRAM OXALATE
     Dosage: 15 MG, 1X/DAY
     Route: 048
  8. OXYCONTIN [Concomitant]
     Active Substance: OXYCODONE HYDROCHLORIDE
     Indication: PAIN
     Dosage: 20 MG, 2X/DAY
     Route: 048
  9. METRONIDAZOL ACTAVIS [Concomitant]
     Active Substance: METRONIDAZOLE
     Dosage: 500 MG, 3X/DAY
     Route: 048
  10. INLYTA [Suspect]
     Active Substance: AXITINIB
     Indication: RENAL CANCER METASTATIC
     Dosage: DOSE: VARYING BASED ON SIDE EFFECTS, STRENGHT: VARYING.
     Route: 048
     Dates: start: 20140522, end: 20140717
  11. KODEIN ^DAK^ [Concomitant]
     Indication: COUGH
     Dosage: 25 MG; 1 TABLET AS NEEDED, AT MOST 8 TABLETS IN 24 HOURS
     Route: 048
  12. AVELOX [Concomitant]
     Active Substance: MOXIFLOXACIN HYDROCHLORIDE
     Dosage: 400 MG, 1X/DAY
     Route: 048
  13. IMOGAS [Concomitant]
     Active Substance: DIMETHICONE\SILICON DIOXIDE
     Indication: ABDOMINAL DISTENSION
     Dosage: 240 MG, 1 CAPSULE AS NEEDED, AT MOST 3 CAPSULES DAILY
     Route: 048
     Dates: start: 20140716, end: 20140725
  14. KLORZOXAZON ^DAK^ [Concomitant]
     Indication: MUSCLE RELAXANT THERAPY
     Dosage: 250 MG, 3X/DAY
     Route: 048
     Dates: start: 20140714, end: 20140725
  15. PINEX [Concomitant]
     Active Substance: ACETAMINOPHEN
     Indication: PAIN
     Dosage: 1000 MG, (STRENGTH: 500 MG. DOSE: 2 TABLETS AS NEEDED, AT MOST 8 TABLETS IN 24 HOURS)
     Route: 048
  16. MATRIFEN [Concomitant]
     Active Substance: FENTANYL
     Dosage: 12 ?G/HOUR 1 PATCH EVERY 3 DAYS
     Route: 062

REACTIONS (10)
  - Renal cancer metastatic [Fatal]
  - Gallbladder pain [Not Recovered/Not Resolved]
  - General physical health deterioration [Fatal]
  - Muscular weakness [Unknown]
  - Hypometabolism [Unknown]
  - Dry mouth [Unknown]
  - Gastric ulcer haemorrhage [Not Recovered/Not Resolved]
  - Thyroid disorder [Unknown]
  - Dyspnoea [Unknown]
  - Disease progression [Fatal]

NARRATIVE: CASE EVENT DATE: 20140712
